FAERS Safety Report 6358180-7 (Version None)
Quarter: 2009Q3

REPORT INFORMATION
  Report Type: 
  Country: None (occurrence: None)
  Receive Date: 20090916
  Receipt Date: 20090909
  Transmission Date: 20100115
  Serious: Yes (Other)
  Sender: FDA-Public Use
  Company Number: US-ELI_LILLY_AND_COMPANY-US200909002587

PATIENT
  Sex: Male

DRUGS (2)
  1. HUMALOG [Suspect]
     Dosage: UNK, UNK
     Dates: start: 19960614
  2. LANTUS [Concomitant]

REACTIONS (7)
  - BLOOD GLUCOSE DECREASED [None]
  - BLOOD GLUCOSE INCREASED [None]
  - CARDIAC PACEMAKER INSERTION [None]
  - CORONARY ARTERY BYPASS [None]
  - GLYCOSYLATED HAEMOGLOBIN INCREASED [None]
  - INFLUENZA [None]
  - WEIGHT DECREASED [None]
